FAERS Safety Report 9410133 (Version 1)
Quarter: 2013Q3

REPORT INFORMATION
  Report Type: Spontaneous
  Country: AT (occurrence: AT)
  Receive Date: 20130719
  Receipt Date: 20130719
  Transmission Date: 20140515
  Serious: Yes (Other)
  Sender: FDA-Public Use
  Company Number: AT-ROXANE LABORATORIES, INC.-2013-RO-01179RO

PATIENT
  Age: 61 Year
  Sex: Male

DRUGS (6)
  1. LORAZEPAM [Suspect]
     Indication: MAJOR DEPRESSION
     Dosage: 4.5 MG
  2. LORAZEPAM [Suspect]
     Dosage: 2.5 MG
  3. LORAZEPAM [Suspect]
     Dosage: 1.5 MG
  4. LORAZEPAM [Suspect]
     Dosage: 1 MG
  5. QUETIAPINE FUMARATE [Suspect]
     Indication: MAJOR DEPRESSION
     Dosage: 150 MG
  6. VENLAFAXINE [Suspect]
     Indication: MAJOR DEPRESSION
     Dosage: 300 MG

REACTIONS (1)
  - Restless legs syndrome [Recovered/Resolved]
